FAERS Safety Report 16952203 (Version 2)
Quarter: 2019Q4

REPORT INFORMATION
  Report Type: Report from Study
  Country: US (occurrence: US)
  Receive Date: 20191023
  Receipt Date: 20191028
  Transmission Date: 20200122
  Serious: Yes (Hospitalization, Other)
  Sender: FDA-Public Use
  Company Number: US-UCBSA-2019043822

PATIENT
  Age: 39 Year
  Sex: Male
  Weight: 171 kg

DRUGS (1)
  1. BRIVARACETAM [Suspect]
     Active Substance: BRIVARACETAM
     Indication: PRODUCT USED FOR UNKNOWN INDICATION
     Dosage: 100 MG DAILY
     Dates: start: 2018, end: 201812

REACTIONS (6)
  - Speech disorder [Unknown]
  - Brain oedema [Recovering/Resolving]
  - Brain contusion [Recovering/Resolving]
  - Hemiparesis [Unknown]
  - Facial paresis [Unknown]
  - Cough [Unknown]

NARRATIVE: CASE EVENT DATE: 201910
